FAERS Safety Report 4443741-2 (Version None)
Quarter: 2004Q3

REPORT INFORMATION
  Report Type: 
  Country: None (occurrence: None)
  Receive Date: 20040729
  Receipt Date: 20040408
  Transmission Date: 20050211
  Serious: Yes (Other)
  Sender: FDA-Public Use
  Company Number: US-JNJFOC-20040200144

PATIENT
  Age: 47 Year
  Sex: Male

DRUGS (4)
  1. RISPERDAL [Suspect]
     Indication: ANXIETY
     Dosage: 2 MG, 2 IN 1 DAY, ORAL;  1 MG, 2 IN 1 DAY, ORAL
     Route: 048
     Dates: start: 19950101, end: 20030801
  2. RISPERDAL [Suspect]
     Indication: DEPRESSION
     Dosage: 2 MG, 2 IN 1 DAY, ORAL;  1 MG, 2 IN 1 DAY, ORAL
     Route: 048
     Dates: start: 19950101, end: 20030801
  3. RISPERDAL [Suspect]
     Indication: ANXIETY
     Dosage: 2 MG, 2 IN 1 DAY, ORAL;  1 MG, 2 IN 1 DAY, ORAL
     Route: 048
     Dates: start: 20030801
  4. RISPERDAL [Suspect]
     Indication: DEPRESSION
     Dosage: 2 MG, 2 IN 1 DAY, ORAL;  1 MG, 2 IN 1 DAY, ORAL
     Route: 048
     Dates: start: 20030801

REACTIONS (5)
  - CEREBROVASCULAR ACCIDENT [None]
  - CHOKING [None]
  - INSOMNIA [None]
  - LOSS OF CONSCIOUSNESS [None]
  - TREMOR [None]
